FAERS Safety Report 25323658 (Version 1)
Quarter: 2025Q2

REPORT INFORMATION
  Report Type: Spontaneous
  Country: ES (occurrence: ES)
  Receive Date: 20250516
  Receipt Date: 20250516
  Transmission Date: 20250716
  Serious: Yes (Other)
  Sender: MYLAN
  Company Number: None

PATIENT
  Age: 68 Year
  Sex: Female

DRUGS (2)
  1. ZOLEDRONIC ACID [Interacting]
     Active Substance: ZOLEDRONIC ACID
     Indication: Osteoporosis
     Dosage: 5 MILLIGRAM, QY
     Dates: start: 20240807, end: 20240807
  2. PROLIA [Interacting]
     Active Substance: DENOSUMAB
     Indication: Osteoporosis

REACTIONS (4)
  - Tenosynovitis [Recovered/Resolved]
  - Polyarthritis [Recovered/Resolved]
  - Chondrocalcinosis [Not Recovered/Not Resolved]
  - Drug interaction [Unknown]

NARRATIVE: CASE EVENT DATE: 20240808
